FAERS Safety Report 23594985 (Version 1)
Quarter: 2024Q1

REPORT INFORMATION
  Report Type: Spontaneous
  Country: GB (occurrence: GB)
  Receive Date: 20240305
  Receipt Date: 20240305
  Transmission Date: 20240410
  Serious: Yes (Other)
  Sender: FDA-Public Use
  Company Number: None

PATIENT
  Age: 5 Month
  Sex: Male
  Weight: 11 kg

DRUGS (5)
  1. MONTELUKAST [Suspect]
     Active Substance: MONTELUKAST SODIUM
     Indication: Product used for unknown indication
     Dosage: AT NIGHT
     Dates: start: 20240212
  2. BECLOMETHASONE DIPROPIONATE [Concomitant]
     Active Substance: BECLOMETHASONE DIPROPIONATE
     Indication: Product used for unknown indication
     Dosage: INHALE ONE PUFF TWICE DAILY TO HELP PREVENT BRE...
     Route: 055
     Dates: start: 20230623
  3. COMBISAL [Concomitant]
     Indication: Product used for unknown indication
     Dosage: INHALE TWO PUFFS TWICE A DAY TO HELP PREVENT BR...
     Route: 055
     Dates: start: 20240221
  4. ALBUTEROL [Concomitant]
     Active Substance: ALBUTEROL
     Indication: Product used for unknown indication
     Dosage: INHALE ONE TO TWO PUFFS UP TO FOUR TIMES A DAY ...
     Route: 055
     Dates: start: 20230623
  5. CHLORPHENIRAMINE MALEATE [Concomitant]
     Active Substance: CHLORPHENIRAMINE MALEATE
     Indication: Product used for unknown indication
     Dosage: 1MG (2.5ML) EVERY 4 TO 6 HOURS. MAXIMUM DAILY D...
     Dates: start: 20230623

REACTIONS (4)
  - Irritability [Recovering/Resolving]
  - Aggression [Recovering/Resolving]
  - Malaise [Unknown]
  - Sleep disorder [Unknown]
